FAERS Safety Report 4393413-8 (Version None)
Quarter: 2004Q3

REPORT INFORMATION
  Report Type: 
  Country: None (occurrence: None)
  Receive Date: 20040707
  Receipt Date: 20040707
  Transmission Date: 20050211
  Serious: Yes (Other)
  Sender: FDA-Public Use
  Company Number: None

PATIENT
  Sex: Female
  Weight: 133.8111 kg

DRUGS (1)
  1. MERREM [Suspect]
     Indication: CELLULITIS
     Dosage: 1 GRAM 3 TIMES INTRAVENOUS
     Route: 042
     Dates: start: 20040625, end: 20040705

REACTIONS (2)
  - MUCOSAL INFLAMMATION [None]
  - SWOLLEN TONGUE [None]
